FAERS Safety Report 9521549 (Version 1)
Quarter: 2013Q3

REPORT INFORMATION
  Report Type: Spontaneous
  Country: IT (occurrence: None)
  Receive Date: 20130911
  Receipt Date: 20130911
  Transmission Date: 20140515
  Serious: Yes (Hospitalization)
  Sender: FDA-Public Use
  Company Number: NSR_01244_2013

PATIENT
  Age: 84 Year
  Sex: Male

DRUGS (12)
  1. TRAMADOL (TRAMADOL) [Suspect]
     Indication: BACK PAIN
     Dosage: (25 MG, DAILY)
  2. INTANZA [Suspect]
     Indication: ANTIVIRAL PROPHYLAXIS
     Dosage: (DF)
  3. ALLOPURINOL [Concomitant]
  4. DIGOXIN (UNKNOWN) [Concomitant]
  5. FUROSEMIDE (UNKNOWN) [Concomitant]
  6. PRAMIPEXOLE [Concomitant]
  7. OLMESARTAN (UNKNOWN) [Concomitant]
  8. PANTOPRAZOLE (UNKNOWN) [Concomitant]
  9. REPAGLINIDE (UNKNOWN) [Concomitant]
  10. DILTIAZEM (UNKNOWN) [Concomitant]
  11. SALMETEROL (UNKNOWN) [Concomitant]
  12. FLUTICASONE (UNKNOWN) [Concomitant]

REACTIONS (5)
  - Hallucination [None]
  - Psychomotor hyperactivity [None]
  - Hypotension [None]
  - Malaise [None]
  - Drug interaction [None]
